FAERS Safety Report 18847298 (Version 2)
Quarter: 2021Q1

REPORT INFORMATION
  Report Type: Spontaneous
  Country: US (occurrence: US)
  Receive Date: 20210204
  Receipt Date: 20210209
  Transmission Date: 20210419
  Serious: Yes (Hospitalization, Other)
  Sender: FDA-Public Use
  Company Number: US-009507513-2102USA000873

PATIENT
  Age: 74 Year
  Sex: Female

DRUGS (1)
  1. KEYTRUDA [Suspect]
     Active Substance: PEMBROLIZUMAB
     Indication: ENDOMETRIAL ADENOCARCINOMA
     Dosage: UNK

REACTIONS (7)
  - Hepatic artery aneurysm [Unknown]
  - Gastrointestinal arteriovenous malformation [Unknown]
  - Splenic artery aneurysm [Unknown]
  - Coeliac artery aneurysm [Unknown]
  - Mesenteric artery aneurysm [Unknown]
  - Intra-abdominal haemorrhage [Unknown]
  - Off label use [Unknown]
